FAERS Safety Report 11970250 (Version 1)
Quarter: 2016Q1

REPORT INFORMATION
  Report Type: Spontaneous
  Country: US (occurrence: None)
  Receive Date: 20160127
  Receipt Date: 20160127
  Transmission Date: 20160526
  Serious: Yes (Hospitalization)
  Sender: FDA-Public Use
  Company Number: None

PATIENT
  Age: 64 Year
  Sex: Male
  Weight: 87.4 kg

DRUGS (2)
  1. HEPARIN [Suspect]
     Active Substance: HEPARIN SODIUM
     Indication: CARDIOVASCULAR EVENT PROPHYLAXIS
     Dosage: PRODUCT UNITS
     Route: 042
  2. HEPARIN [Suspect]
     Active Substance: HEPARIN SODIUM
     Indication: JUGULAR VEIN THROMBOSIS
     Dosage: PRODUCT UNITS
     Route: 042

REACTIONS (2)
  - Heparin-induced thrombocytopenia test positive [None]
  - Thrombocytopenia [None]

NARRATIVE: CASE EVENT DATE: 20151109
